FAERS Safety Report 4688496-1 (Version None)
Quarter: 2005Q2

REPORT INFORMATION
  Report Type: 
  Country: None (occurrence: None)
  Receive Date: 20050613
  Receipt Date: 20050602
  Transmission Date: 20051028
  Serious: Yes (Other)
  Sender: FDA-Public Use
  Company Number: US-JNJFOC-20050502309

PATIENT
  Sex: Male
  Weight: 141.98 kg

DRUGS (7)
  1. REMICADE [Suspect]
     Route: 042
  2. REMICADE [Suspect]
     Route: 042
  3. REMICADE [Suspect]
     Route: 042
  4. REMICADE [Suspect]
     Indication: RHEUMATOID ARTHRITIS
     Route: 042
  5. MOBIC [Concomitant]
  6. DN100 [Concomitant]
  7. DN100 [Concomitant]

REACTIONS (1)
  - LYMPHOCYTIC LEUKAEMIA [None]
